FAERS Safety Report 7542126-X (Version None)
Quarter: 2011Q2

REPORT INFORMATION
  Report Type: 
  Country: None (occurrence: None)
  Receive Date: 20110524
  Receipt Date: 20110310
  Transmission Date: 20111010
  Serious: No
  Sender: FDA-Public Use
  Company Number: 029118

PATIENT
  Sex: Female

DRUGS (1)
  1. CIMZIA [Suspect]
     Indication: CROHN'S DISEASE
     Dosage: (CIMZIA PFS SUBCUTANEOUS)
     Route: 058
     Dates: start: 20100405

REACTIONS (3)
  - HYPERSENSITIVITY [None]
  - NASOPHARYNGITIS [None]
  - FATIGUE [None]
